FAERS Safety Report 17435024 (Version 1)
Quarter: 2020Q1

REPORT INFORMATION
  Report Type: Spontaneous
  Country: US (occurrence: US)
  Receive Date: 20200203
  Receipt Date: 20200203
  Transmission Date: 20200409
  Serious: Yes (Hospitalization)
  Sender: FDA-Public Use
  Company Number: None

PATIENT
  Age: 60 Year
  Sex: Male
  Weight: 62.6 kg

DRUGS (1)
  1. CEFTRIAXONE (CEFTRIOXONE NA 2GM/VIL INJ) [Suspect]
     Active Substance: CEFTRIAXONE
     Indication: LOWER RESPIRATORY TRACT INFECTION
     Route: 042
     Dates: start: 20180202, end: 20180310

REACTIONS (1)
  - Rash [None]

NARRATIVE: CASE EVENT DATE: 20180210
